FAERS Safety Report 5075235-8 (Version None)
Quarter: 2006Q3

REPORT INFORMATION
  Report Type: 
  Country: None (occurrence: None)
  Receive Date: 20060809
  Receipt Date: 20050922
  Transmission Date: 20061208
  Serious: Yes (Other)
  Sender: FDA-Public Use
  Company Number: PHHO2005CA14983

PATIENT
  Age: 35 Year
  Sex: Male

DRUGS (1)
  1. CLOZARIL [Suspect]
     Indication: PSYCHOTIC DISORDER
     Dosage: MAXIMAL 200MG PER DAY
     Route: 048
     Dates: start: 20050608, end: 20050627

REACTIONS (5)
  - DIZZINESS [None]
  - LETHARGY [None]
  - PALPITATIONS [None]
  - SLUGGISHNESS [None]
  - SPEECH DISORDER [None]
